FAERS Safety Report 7827609-7 (Version None)
Quarter: 2011Q4

REPORT INFORMATION
  Report Type: 
  Country: None (occurrence: None)
  Receive Date: 20111020
  Receipt Date: 20111014
  Transmission Date: 20120403
  Serious: Yes (Hospitalization)
  Sender: FDA-Public Use
  Company Number: AU-SANOFI-AVENTIS-2011SA044336

PATIENT
  Age: 78 Year
  Sex: Male
  Weight: 84 kg

DRUGS (9)
  1. DRONEDARONE HCL [Suspect]
     Indication: ATRIAL FIBRILLATION
     Route: 048
     Dates: start: 20110131
  2. FUROSEMIDE [Concomitant]
     Route: 065
     Dates: end: 20110405
  3. WARFARIN SODIUM [Concomitant]
     Indication: THROMBOSIS
     Route: 065
  4. FUROSEMIDE [Concomitant]
     Indication: HYPERTENSION
     Route: 065
  5. AMLODIPINE [Concomitant]
     Indication: HYPERTENSION
     Route: 065
  6. ASPIRIN [Concomitant]
     Indication: THROMBOSIS
     Route: 065
  7. RAMIPRIL [Concomitant]
     Route: 065
  8. METOPROLOL TARTRATE [Concomitant]
     Indication: HEART RATE ABNORMAL
     Route: 065
  9. SIMVASTATIN [Concomitant]
     Route: 065

REACTIONS (1)
  - PLEURISY [None]
